FAERS Safety Report 6480383-1 (Version None)
Quarter: 2009Q4

REPORT INFORMATION
  Report Type: 
  Country: None (occurrence: None)
  Receive Date: 20091208
  Receipt Date: 20091125
  Transmission Date: 20100525
  Serious: Yes (Other)
  Sender: FDA-Public Use
  Company Number: US-SANOFI-AVENTIS-200917401US

PATIENT
  Age: 18 Year
  Sex: Male

DRUGS (2)
  1. INSULIN GLULISINE [Suspect]
     Dosage: DOSE:90 UNIT(S)
     Route: 058
     Dates: start: 20090519
  2. VYTORIN [Concomitant]
     Dosage: DOSE AS USED: 10/20
     Route: 048
     Dates: start: 20050101

REACTIONS (1)
  - KETOACIDOSIS [None]
